FAERS Safety Report 10798546 (Version 1)
Quarter: 2015Q1

REPORT INFORMATION
  Report Type: Spontaneous
  Country: DE (occurrence: DE)
  Receive Date: 20150216
  Receipt Date: 20150216
  Transmission Date: 20150721
  Serious: Yes (Other)
  Sender: FDA-Public Use
  Company Number: DE-BAYER-2015-018485

PATIENT
  Age: 46 Year
  Sex: Female
  Weight: 54.88 kg

DRUGS (2)
  1. CIPROFLOXACIN. [Suspect]
     Active Substance: CIPROFLOXACIN
     Indication: CYSTITIS
     Dosage: 250 MG, BID
     Route: 048
  2. GADOLINIUM [Concomitant]
     Active Substance: GADOLINIUM

REACTIONS (1)
  - Muscle rupture [Unknown]
